FAERS Safety Report 12140729 (Version 1)
Quarter: 2016Q1

REPORT INFORMATION
  Report Type: Spontaneous
  Country: SG (occurrence: SG)
  Receive Date: 20160303
  Receipt Date: 20160303
  Transmission Date: 20160526
  Serious: Yes (Hospitalization, Other)
  Sender: FDA-Public Use
  Company Number: SG-BAUSCH-BL-2016-004616

PATIENT
  Sex: Female
  Weight: 1.91 kg

DRUGS (1)
  1. DIAZEPAM. [Suspect]
     Active Substance: DIAZEPAM
     Indication: PRODUCT USED FOR UNKNOWN INDICATION
     Route: 064

REACTIONS (4)
  - Haemorrhage intracranial [Unknown]
  - Foetal exposure during pregnancy [Unknown]
  - Respiratory distress [Unknown]
  - Neurodevelopmental disorder [Unknown]
